FAERS Safety Report 4379876-2 (Version None)
Quarter: 2004Q2

REPORT INFORMATION
  Report Type: 
  Country: None (occurrence: None)
  Receive Date: 20040614
  Receipt Date: 20040604
  Transmission Date: 20050107
  Serious: Yes (Death, Other)
  Sender: FDA-Public Use
  Company Number: A-CH2004-05546

PATIENT
  Age: 59 Year
  Sex: Male

DRUGS (14)
  1. TRACLEER [Suspect]
     Indication: PULMONARY HYPERTENSION
     Dosage: 62.5 MG, BID, ORAL
     Route: 048
     Dates: start: 20030901
  2. TRACLEER [Suspect]
     Indication: PULMONARY HYPERTENSION
     Dosage: 62.5 MG, BID, ORAL
     Route: 048
     Dates: start: 20030617, end: 20030723
  3. TRACLEER [Suspect]
     Indication: PULMONARY HYPERTENSION
     Dosage: 125 MG, BID, ORAL
     Route: 048
     Dates: start: 20030724, end: 20030901
  4. TRACLEER [Suspect]
     Indication: PULMONARY HYPERTENSION
     Dosage: 125 MG, BID, ORAL
     Route: 048
     Dates: end: 20040314
  5. PREDNISONE [Concomitant]
  6. PANTOZOL (PANTOPRAZOLE) [Concomitant]
  7. ISOKET (ISOSORBIDE DINITRATE) [Concomitant]
  8. MOLSIDOMINE (MOLSIDOMINE) [Concomitant]
  9. VESDIL (RAMIPRIL) [Concomitant]
  10. ACETYLSALICYLIC ACID SRT [Concomitant]
  11. ALDACTONE [Concomitant]
  12. CYCLOPHOSPHAMIDE [Concomitant]
  13. ZYLORIC ^FRESENIUS^ [Concomitant]
  14. FALITHROM (PHENPROCOUMON) [Concomitant]

REACTIONS (4)
  - CONDITION AGGRAVATED [None]
  - PNEUMONIA [None]
  - PULMONARY HYPERTENSION [None]
  - RESPIRATORY FAILURE [None]
